FAERS Safety Report 24766157 (Version 7)
Quarter: 2025Q1

REPORT INFORMATION
  Report Type: Report from Study
  Country: MX (occurrence: MX)
  Receive Date: 20241223
  Receipt Date: 20250325
  Transmission Date: 20250409
  Serious: Yes (Hospitalization)
  Sender: TAKEDA
  Company Number: MX-TAKEDA-2024TUS127088

PATIENT
  Age: 53 Year
  Sex: Female
  Weight: 48 kg

DRUGS (15)
  1. ICATIBANT [Suspect]
     Active Substance: ICATIBANT ACETATE
     Indication: Hereditary angioedema
  2. ICATIBANT [Suspect]
     Active Substance: ICATIBANT ACETATE
  3. TAKHZYRO [Suspect]
     Active Substance: LANADELUMAB-FLYO
     Indication: Hereditary angioedema
     Dosage: UNK UNK, MONTHLY
     Dates: start: 20250109
  4. TAKHZYRO [Suspect]
     Active Substance: LANADELUMAB-FLYO
  5. TAKHZYRO [Suspect]
     Active Substance: LANADELUMAB-FLYO
     Dosage: 300 MILLIGRAM, MONTHLY
  6. ENOXAPARIN [Concomitant]
     Active Substance: ENOXAPARIN
     Indication: Hereditary angioedema
  7. PREGABALIN [Concomitant]
     Active Substance: PREGABALIN
     Indication: Back pain
     Dosage: 1 DOSAGE FORM, BID
  8. PREGABALIN [Concomitant]
     Active Substance: PREGABALIN
     Dosage: 75 GRAM, QD
     Dates: start: 2015
  9. PREGABALIN [Concomitant]
     Active Substance: PREGABALIN
     Dosage: 150 GRAM, BID
  10. ACETAMINOPHEN [Concomitant]
     Active Substance: ACETAMINOPHEN
  11. OMEPRAZOLE [Concomitant]
     Active Substance: OMEPRAZOLE
     Indication: Gastrointestinal disorder
  12. DEFLAZACORT [Concomitant]
     Active Substance: DEFLAZACORT
  13. CLONAZEPAM [Concomitant]
     Active Substance: CLONAZEPAM
     Indication: Insomnia
  14. PINAVERIUM BROMIDE [Concomitant]
     Active Substance: PINAVERIUM BROMIDE
     Indication: Gastrointestinal disorder
  15. SALINE [Concomitant]
     Active Substance: SODIUM CHLORIDE

REACTIONS (28)
  - Abdominal pain upper [Recovered/Resolved]
  - Vomiting [Recovered/Resolved]
  - Gastroenteritis [Recovered/Resolved]
  - Diarrhoea [Recovered/Resolved]
  - Weight decreased [Recovered/Resolved]
  - Depression [Recovered/Resolved]
  - Back pain [Recovered/Resolved]
  - Insomnia [Recovered/Resolved]
  - Nervousness [Unknown]
  - Gastrointestinal disorder [Recovered/Resolved]
  - Influenza [Not Recovered/Not Resolved]
  - Vertigo [Not Recovered/Not Resolved]
  - Vestibular disorder [Unknown]
  - Ligament sprain [Not Recovered/Not Resolved]
  - Nausea [Recovered/Resolved]
  - Blood pressure decreased [Recovered/Resolved]
  - Dehydration [Recovered/Resolved]
  - Memory impairment [Not Recovered/Not Resolved]
  - Nasal dryness [Recovered/Resolved]
  - Intervertebral disc protrusion [Recovered/Resolved]
  - Fluid retention [Recovered/Resolved]
  - Neuralgia [Recovered/Resolved]
  - Inflammation [Recovered/Resolved]
  - Pain [Recovered/Resolved]
  - Stress [Recovered/Resolved]
  - Haematological infection [Recovered/Resolved]
  - Hereditary angioedema [Recovered/Resolved]
  - Dizziness [Recovered/Resolved]

NARRATIVE: CASE EVENT DATE: 20241128
